FAERS Safety Report 18809904 (Version 4)
Quarter: 2021Q1

REPORT INFORMATION
  Report Type: Spontaneous
  Country: JP (occurrence: JP)
  Receive Date: 20210129
  Receipt Date: 20210217
  Transmission Date: 20210419
  Serious: Yes (Other)
  Sender: FDA-Public Use
  Company Number: JP-PFIZER INC-2020512847

PATIENT
  Age: 62 Year
  Sex: Male

DRUGS (5)
  1. MEKTOVI [Interacting]
     Active Substance: BINIMETINIB
     Indication: COLON CANCER
     Dosage: UNK, EVERYDAY
     Route: 048
     Dates: start: 20201217
  2. CETUXIMAB. [Interacting]
     Active Substance: CETUXIMAB
     Indication: COLON CANCER
     Dosage: UNK, QW
     Route: 042
     Dates: start: 20201217
  3. BRAFTOVI [Suspect]
     Active Substance: ENCORAFENIB
     Indication: COLON CANCER
     Dosage: UNK, EVERYDAY
     Route: 048
     Dates: start: 20201217
  4. BRAFTOVI [Interacting]
     Active Substance: ENCORAFENIB
     Dosage: UNK UNK, EVERYDAY
     Route: 048
     Dates: start: 20210107
  5. MEKTOVI [Interacting]
     Active Substance: BINIMETINIB
     Dosage: UNK, EVERYDAY
     Route: 048
     Dates: start: 20210107

REACTIONS (2)
  - Serous retinal detachment [Recovered/Resolved]
  - Drug interaction [Unknown]

NARRATIVE: CASE EVENT DATE: 20201217
